FAERS Safety Report 6030270-8 (Version None)
Quarter: 2008Q4

REPORT INFORMATION
  Report Type: 
  Country: None (occurrence: None)
  Receive Date: 20081222
  Receipt Date: 20081023
  Transmission Date: 20090506
  Serious: Yes (Other)
  Sender: FDA-Public Use
  Company Number: US-WYE-H06542908

PATIENT
  Age: 38 Year
  Sex: Female
  Weight: 81.72 kg

DRUGS (1)
  1. PRISTIQ [Suspect]
     Dosage: ORAL
     Route: 048

REACTIONS (1)
  - HEADACHE [None]
